FAERS Safety Report 25888844 (Version 2)
Quarter: 2025Q4

REPORT INFORMATION
  Report Type: Report from Study
  Country: US (occurrence: US)
  Receive Date: 20251007
  Receipt Date: 20251105
  Transmission Date: 20260118
  Serious: Yes (Other)
  Sender: JOHNSON AND JOHNSON
  Company Number: US-JNJFOC-20250948020

PATIENT
  Age: 60 Year
  Sex: Male

DRUGS (1)
  1. SPRAVATO [Suspect]
     Active Substance: ESKETAMINE
     Indication: Depression
     Dosage: 84 MG, TOTAL OF 11 DOSES
     Route: 045
     Dates: start: 20250731, end: 20250912

REACTIONS (6)
  - Adverse event [Unknown]
  - Keratomileusis [Unknown]
  - Neck surgery [Unknown]
  - Social problem [Unknown]
  - Product dose omission issue [Unknown]
  - Respiratory disorder [Unknown]

NARRATIVE: CASE EVENT DATE: 20250101
